FAERS Safety Report 7669291-8 (Version None)
Quarter: 2011Q3

REPORT INFORMATION
  Report Type: 
  Country: None (occurrence: None)
  Receive Date: 20110808
  Receipt Date: 20110802
  Transmission Date: 20111222
  Serious: Yes (Other)
  Sender: FDA-Public Use
  Company Number: PHEH2011US00564

PATIENT
  Sex: Female

DRUGS (9)
  1. RECLAST [Suspect]
     Dosage: UNK UKN, UNK
     Route: 042
  2. VERAPAMIL [Concomitant]
     Dosage: UNK UKN, UNK
  3. VITAMIN D [Concomitant]
     Dosage: UNK UKN, UNK
     Route: 042
  4. ZOLOFT [Concomitant]
     Dosage: UNK UKN, UNK
  5. COUMADIN [Concomitant]
     Dosage: UNK UKN, UNK
  6. BENZODIAZEPINES [Concomitant]
     Dosage: UNK UKN, UNK
  7. ANALGESICS [Concomitant]
     Dosage: UNK UKN, UNK
  8. FORTEO [Concomitant]
     Dosage: UNK UKN, UNK
  9. CALCIUM CARBONATE [Concomitant]
     Dosage: UNK UKN, UNK

REACTIONS (1)
  - OSTEOMALACIA [None]
